FAERS Safety Report 5051146-9 (Version None)
Quarter: 2006Q3

REPORT INFORMATION
  Report Type: 
  Country: None (occurrence: None)
  Receive Date: 20060710
  Receipt Date: 20060627
  Transmission Date: 20061208
  Serious: Yes (Other)
  Sender: FDA-Public Use
  Company Number: 2006081616

PATIENT
  Age: 47 Year
  Sex: Male

DRUGS (3)
  1. SUTENT [Suspect]
     Indication: RENAL CANCER METASTATIC
     Dosage: (50 MG, DAILY), ORAL
     Route: 048
     Dates: start: 20060622
  2. VALIUM [Suspect]
     Indication: HYPOTONIA
     Dosage: (AS NECESSARY), ORAL
     Route: 048
     Dates: start: 20060501
  3. ENDOCEST (OXYCODONE HYDROCHLORIDE, PARACETAMOL) [Concomitant]

REACTIONS (7)
  - ANOREXIA [None]
  - DYSPNOEA [None]
  - FATIGUE [None]
  - FLUID INTAKE REDUCED [None]
  - OXYGEN SATURATION DECREASED [None]
  - THROMBOSIS [None]
  - WEIGHT DECREASED [None]
